FAERS Safety Report 13038447 (Version 1)
Quarter: 2016Q4

REPORT INFORMATION
  Report Type: Spontaneous
  Country: US (occurrence: US)
  Receive Date: 20161219
  Receipt Date: 20161219
  Transmission Date: 20170207
  Serious: Yes (Hospitalization)
  Sender: FDA-Public Use
  Company Number: US-ALEMBIC PHARMACUETICALS LIMITED-2016SCAL000130

PATIENT

DRUGS (3)
  1. LEFLUNOMIDE. [Suspect]
     Active Substance: LEFLUNOMIDE
     Dosage: 20 MG, UNK
     Dates: end: 201511
  2. LEFLUNOMIDE. [Suspect]
     Active Substance: LEFLUNOMIDE
     Dosage: RESUMED
     Dates: start: 2015, end: 20151209
  3. LEFLUNOMIDE. [Suspect]
     Active Substance: LEFLUNOMIDE
     Indication: ARTHRITIS
     Dosage: 10 MG, UNK
     Route: 048
     Dates: start: 20150910

REACTIONS (14)
  - Hypophagia [Unknown]
  - Balance disorder [Unknown]
  - Constipation [Unknown]
  - Condition aggravated [Unknown]
  - Parosmia [Unknown]
  - Dysgeusia [Not Recovered/Not Resolved]
  - Weight decreased [Unknown]
  - Gastrointestinal disorder [Recovered/Resolved]
  - Lacrimation increased [Unknown]
  - General physical health deterioration [Unknown]
  - Oral discomfort [Unknown]
  - Depressed mood [Unknown]
  - Anxiety [Unknown]
  - Dyspnoea [Recovered/Resolved]

NARRATIVE: CASE EVENT DATE: 2015
